APPROVED DRUG PRODUCT: IRBESARTAN AND HYDROCHLOROTHIAZIDE
Active Ingredient: HYDROCHLOROTHIAZIDE; IRBESARTAN
Strength: 12.5MG;150MG
Dosage Form/Route: TABLET;ORAL
Application: A201524 | Product #001
Applicant: LUPIN LTD
Approved: Feb 27, 2013 | RLD: No | RS: No | Type: DISCN